FAERS Safety Report 8464869-6 (Version None)
Quarter: 2012Q2

REPORT INFORMATION
  Report Type: 
  Country: None (occurrence: None)
  Receive Date: 20120626
  Receipt Date: 20120619
  Transmission Date: 20120825
  Serious: Yes (Hospitalization, Other)
  Sender: FDA-Public Use
  Company Number: DK-ELI_LILLY_AND_COMPANY-DK201203001364

PATIENT
  Sex: Male

DRUGS (9)
  1. PRASUGREL HYDROCHLORIDE [Suspect]
     Indication: PERCUTANEOUS CORONARY INTERVENTION
     Dosage: 5 MG, QD
     Dates: start: 20100803, end: 20110803
  2. WARFARIN SODIUM [Concomitant]
     Indication: ATRIAL FIBRILLATION
     Dosage: 2.5 MG, QD
     Route: 048
     Dates: start: 20110428
  3. METOPROLOL SUCCINATE [Concomitant]
     Dosage: 200 MG, QD
     Dates: start: 20100803
  4. DIGOXIN [Concomitant]
     Dosage: 187.5 MG, QD
     Dates: start: 20110330
  5. MAGNYL [Concomitant]
     Dosage: 75 MG, QD
     Dates: start: 20100803
  6. SIMVASTATIN [Concomitant]
     Dosage: 40 MG, QD
     Dates: start: 20100803
  7. METFORMIN HCL [Concomitant]
     Dosage: 500 MG, QD
  8. PANTOPRAZOLE SODIUM [Concomitant]
     Dosage: 40 MG, QD
  9. RAMIPRIL [Concomitant]
     Dosage: 10 MG, QD

REACTIONS (2)
  - LARGE INTESTINAL HAEMORRHAGE [None]
  - GALLBLADDER DISORDER [None]
